FAERS Safety Report 13500807 (Version 1)
Quarter: 2017Q2

REPORT INFORMATION
  Report Type: Spontaneous
  Country: US (occurrence: US)
  Receive Date: 20170501
  Receipt Date: 20170501
  Transmission Date: 20170830
  Serious: No
  Sender: FDA-Public Use
  Company Number: US-PFIZER INC-2017185320

PATIENT
  Sex: Female

DRUGS (1)
  1. LYRICA [Suspect]
     Active Substance: PREGABALIN
     Indication: FIBROMYALGIA
     Dosage: UNK

REACTIONS (6)
  - Intentional product use issue [Unknown]
  - Drug dose omission [Unknown]
  - Feeling abnormal [Unknown]
  - Weight decreased [Unknown]
  - Pain [Unknown]
  - Somnolence [Unknown]
